FAERS Safety Report 18756716 (Version 1)
Quarter: 2021Q1

REPORT INFORMATION
  Report Type: Spontaneous
  Country: US (occurrence: US)
  Receive Date: 20210118
  Receipt Date: 20210118
  Transmission Date: 20210419
  Serious: Yes (Disabling)
  Sender: FDA-Public Use
  Company Number: None

PATIENT
  Age: 41 Year
  Sex: Female
  Weight: 76.95 kg

DRUGS (13)
  1. NURTEC ODT [Suspect]
     Active Substance: RIMEGEPANT SULFATE
     Indication: MIGRAINE
     Dosage: ?          QUANTITY:1 TABLET(S);OTHER FREQUENCY:ONSET OF HEADACHE;?
     Route: 060
     Dates: start: 20201006, end: 20210110
  2. ALBUTEROL. [Concomitant]
     Active Substance: ALBUTEROL
  3. ALLEGRA [Concomitant]
     Active Substance: FEXOFENADINE HYDROCHLORIDE
  4. ZONOGRAN [Concomitant]
  5. PERIACTIN [Concomitant]
     Active Substance: CYPROHEPTADINE HYDROCHLORIDE
  6. ZADITOR EYE DROPS [Concomitant]
  7. SYNTHROID [Concomitant]
     Active Substance: LEVOTHYROXINE SODIUM
  8. BOTOX [Concomitant]
     Active Substance: ONABOTULINUMTOXINA
  9. CAMBIA [Concomitant]
     Active Substance: DICLOFENAC POTASSIUM
  10. MULTIVITAMIN B2 [Concomitant]
  11. ZANAFLEX [Concomitant]
     Active Substance: TIZANIDINE HYDROCHLORIDE
  12. VITAMIN C [Concomitant]
     Active Substance: ASCORBIC ACID
  13. MAGNESIUM [Concomitant]
     Active Substance: MAGNESIUM

REACTIONS (1)
  - Alopecia [None]

NARRATIVE: CASE EVENT DATE: 20210113
